FAERS Safety Report 6398491-2 (Version None)
Quarter: 2009Q4

REPORT INFORMATION
  Report Type: 
  Country: None (occurrence: None)
  Receive Date: 20091013
  Receipt Date: 20091001
  Transmission Date: 20100525
  Serious: Yes (Other)
  Sender: FDA-Public Use
  Company Number: B0597325A

PATIENT
  Age: 58 Year
  Sex: Female
  Weight: 46 kg

DRUGS (11)
  1. ASPIRIN [Suspect]
  2. CARVEDILOL [Suspect]
  3. PRAVASTATIN [Suspect]
  4. INDOMETHACIN [Suspect]
  5. NICORANDIL [Suspect]
  6. TEPRENONE [Suspect]
  7. FAMOTIDINE [Suspect]
  8. ALFACALCIDOL [Suspect]
  9. TICLOPIDINE HYDROCHLORIDE [Suspect]
  10. CILOSTAZOL [Suspect]
     Indication: CARDIOVASCULAR EVALUATION
  11. HEPARIN SODIUM [Suspect]

REACTIONS (12)
  - ALANINE AMINOTRANSFERASE INCREASED [None]
  - ASPARTATE AMINOTRANSFERASE INCREASED [None]
  - BLOOD BILIRUBIN INCREASED [None]
  - CHOLESTASIS [None]
  - ERYTHEMA MULTIFORME [None]
  - HEART RATE INCREASED [None]
  - HEPATIC ENZYME INCREASED [None]
  - HEPATIC FUNCTION ABNORMAL [None]
  - HEPATOCELLULAR INJURY [None]
  - JAUNDICE [None]
  - LIVER INJURY [None]
  - RASH GENERALISED [None]
